FAERS Safety Report 11594806 (Version 1)
Quarter: 2015Q4

REPORT INFORMATION
  Report Type: Report from Study
  Country: US (occurrence: US)
  Receive Date: 20151005
  Receipt Date: 20151005
  Transmission Date: 20160304
  Serious: Yes (Death, Hospitalization)
  Sender: FDA-Public Use
  Company Number: US-ABBVIE-15K-163-1473848-00

PATIENT
  Age: 40 Year
  Sex: Male
  Weight: 106.69 kg

DRUGS (3)
  1. LEXAPRO [Concomitant]
     Active Substance: ESCITALOPRAM OXALATE
     Indication: PRODUCT USED FOR UNKNOWN INDICATION
  2. HUMIRA [Suspect]
     Active Substance: ADALIMUMAB
     Indication: PSORIASIS
     Route: 058
     Dates: start: 20141031, end: 20150929
  3. LISINOPRIL. [Concomitant]
     Active Substance: LISINOPRIL
     Indication: PRODUCT USED FOR UNKNOWN INDICATION

REACTIONS (24)
  - Subarachnoid haemorrhage [Fatal]
  - Ischaemic stroke [Fatal]
  - Intracranial pressure increased [Fatal]
  - Renal failure [Fatal]
  - PO2 decreased [Fatal]
  - Cerebral haemorrhage [Recovered/Resolved]
  - Neck pain [Recovered/Resolved]
  - Vomiting [Recovered/Resolved]
  - Gaze palsy [Fatal]
  - Hypotension [Fatal]
  - Blood creatine phosphokinase MB increased [Recovered/Resolved]
  - Renal failure [Recovered/Resolved]
  - Blood creatine phosphokinase MB increased [Recovered/Resolved]
  - Headache [Recovered/Resolved]
  - Fall [Recovered/Resolved]
  - Troponin increased [Recovered/Resolved]
  - Ventricular tachycardia [Recovered/Resolved]
  - Lipase increased [Fatal]
  - Haemorrhagic stroke [Fatal]
  - Rhabdomyolysis [Fatal]
  - Anuria [Fatal]
  - Complement fixation abnormal [Fatal]
  - Restlessness [Recovered/Resolved]
  - Haematemesis [Recovered/Resolved]

NARRATIVE: CASE EVENT DATE: 201509
